FAERS Safety Report 25151670 (Version 1)
Quarter: 2025Q2

REPORT INFORMATION
  Report Type: Spontaneous
  Country: US (occurrence: US)
  Receive Date: 20250402
  Receipt Date: 20250402
  Transmission Date: 20250716
  Serious: No
  Sender: TEVA
  Company Number: US-TEVA-VS-3311293

PATIENT
  Age: 80 Year
  Sex: Female

DRUGS (1)
  1. AUSTEDO XR [Suspect]
     Active Substance: DEUTETRABENAZINE
     Indication: Dyskinesia
     Route: 065

REACTIONS (6)
  - Tongue biting [Unknown]
  - Product use issue [Unknown]
  - Product use issue [Unknown]
  - Malaise [Unknown]
  - Compulsive cheek biting [Unknown]
  - Compulsive lip biting [Unknown]

NARRATIVE: CASE EVENT DATE: 20250301
